FAERS Safety Report 7670078-0 (Version None)
Quarter: 2011Q3

REPORT INFORMATION
  Report Type: 
  Country: None (occurrence: None)
  Receive Date: 20110808
  Receipt Date: 20110804
  Transmission Date: 20111222
  Serious: Yes (Other)
  Sender: FDA-Public Use
  Company Number: US-PFIZER INC-2011167080

PATIENT
  Sex: Female

DRUGS (3)
  1. LISINOPRIL [Concomitant]
  2. CELEBREX [Suspect]
     Indication: PAIN
     Dosage: 200 MG, UNK
     Route: 048
     Dates: start: 20110711, end: 20110713
  3. HYDROCHLOROTHIAZIDE [Concomitant]

REACTIONS (1)
  - MELAENA [None]
